FAERS Safety Report 9039024 (Version 1)
Quarter: 2013Q1

REPORT INFORMATION
  Report Type: Report from Study
  Country: US (occurrence: US)
  Receive Date: 20130129
  Receipt Date: 20130129
  Transmission Date: 20140127
  Serious: No
  Sender: FDA-Public Use
  Company Number: US-ABBOTT-12P-163-0932833-00

PATIENT
  Sex: Female
  Weight: 100.33 kg

DRUGS (11)
  1. HUMIRA 40 MG/0.8 ML PEN [Suspect]
     Indication: RHEUMATOID ARTHRITIS
     Dates: start: 200808, end: 201202
  2. HUMIRA 40 MG/0.8 ML PEN [Suspect]
     Route: 058
     Dates: start: 201203
  3. METHOTREXATE [Concomitant]
     Indication: RHEUMATOID ARTHRITIS
  4. FOLIC ACID [Concomitant]
     Indication: VITAMIN SUPPLEMENTATION
  5. LISINOPRIL [Concomitant]
     Indication: HYPERTENSION
  6. IBUPROFEN [Concomitant]
     Indication: RHEUMATOID ARTHRITIS
  7. OMEPRAZOLE [Concomitant]
     Indication: GASTROOESOPHAGEAL REFLUX DISEASE
  8. PREDNISONE [Concomitant]
     Indication: RHEUMATOID ARTHRITIS
  9. FISH OIL [Concomitant]
     Indication: BLOOD CHOLESTEROL INCREASED
  10. NIACIN [Concomitant]
     Indication: BLOOD CHOLESTEROL INCREASED
  11. CALCIUM +VIT D [Concomitant]
     Indication: MINERAL SUPPLEMENTATION

REACTIONS (1)
  - Staphylococcal infection [Recovering/Resolving]
